FAERS Safety Report 8475878-5 (Version None)
Quarter: 2012Q2

REPORT INFORMATION
  Report Type: 
  Country: None (occurrence: None)
  Receive Date: 20120628
  Receipt Date: 20120625
  Transmission Date: 20120825
  Serious: Yes (Other)
  Sender: FDA-Public Use
  Company Number: AR-AMGEN-ARGCT2012029984

PATIENT
  Age: 49 Year
  Sex: Female

DRUGS (4)
  1. ATORVASTATIN [Concomitant]
     Indication: BLOOD CHOLESTEROL INCREASED
     Dosage: 10 MG, QD
     Route: 048
     Dates: start: 20080415
  2. DENOSUMAB [Suspect]
     Indication: BREAST CANCER
     Dosage: 120 MG, QMO
     Route: 058
     Dates: start: 20090729, end: 20110725
  3. DICLOFENAC SODIUM [Concomitant]
     Indication: BONE PAIN
     Dosage: 75 MG, UNK
     Route: 048
     Dates: start: 20080504
  4. LETROZOL [Concomitant]
     Dosage: 2.5 MG, QD
     Route: 048
     Dates: start: 20071218

REACTIONS (1)
  - OSTEONECROSIS OF JAW [None]
